FAERS Safety Report 17799227 (Version 1)
Quarter: 2020Q2

REPORT INFORMATION
  Report Type: Spontaneous
  Country: DE (occurrence: DE)
  Receive Date: 20200518
  Receipt Date: 20200518
  Transmission Date: 20200714
  Serious: Yes (Hospitalization)
  Sender: FDA-Public Use
  Company Number: DE-MYLANLABS-2020M1048538

PATIENT
  Age: 79 Year
  Sex: Female

DRUGS (4)
  1. TORASEMIDE [Suspect]
     Active Substance: TORSEMIDE
     Indication: PRODUCT USED FOR UNKNOWN INDICATION
     Dosage: 10 MG, 1-0-0-0
  2. METAMIZOL                          /06276701/ [Concomitant]
     Active Substance: METAMIZOLE
     Dosage: 500 MG, BEI BEDARF
  3. LACTULOSE. [Concomitant]
     Active Substance: LACTULOSE
     Dosage: NK MG, BEI BEDARF
  4. LOSARTAN. [Concomitant]
     Active Substance: LOSARTAN
     Dosage: 25 MG, 1-0-0-0

REACTIONS (4)
  - Dysuria [Unknown]
  - Food refusal [Unknown]
  - Fluid intake reduced [Unknown]
  - General physical health deterioration [Unknown]
